FAERS Safety Report 10080369 (Version 1)
Quarter: 2014Q2

REPORT INFORMATION
  Report Type: Spontaneous
  Country: PL (occurrence: PL)
  Receive Date: 20140415
  Receipt Date: 20140415
  Transmission Date: 20141212
  Serious: Yes (Life-Threatening, Hospitalization)
  Sender: FDA-Public Use
  Company Number: PL-009507513-1404POL002974

PATIENT
  Age: 35 Year
  Sex: Female

DRUGS (5)
  1. MONTELUKAST SODIUM [Suspect]
  2. PREDNISOLONE [Concomitant]
     Dosage: UNK, QD
  3. FORMOTEROL FUMARATE [Concomitant]
  4. FLUTICASONE [Suspect]
     Dosage: 1000 MICROGRAM PER DAY
  5. CORTICOSTEROIDS (UNSPECIFIED) [Concomitant]
     Route: 042

REACTIONS (3)
  - Bronchospasm [Recovered/Resolved]
  - Asthma [Recovered/Resolved]
  - Laryngeal oedema [Recovered/Resolved]
